FAERS Safety Report 15174150 (Version 2)
Quarter: 2018Q4

REPORT INFORMATION
  Report Type: Report from Study
  Country: US (occurrence: US)
  Receive Date: 20180720
  Receipt Date: 20181017
  Transmission Date: 20190204
  Serious: No
  Sender: FDA-Public Use
  Company Number: US-AMGEN-USASL2018071561

PATIENT
  Age: 65 Year
  Sex: Female
  Weight: 113.38 kg

DRUGS (21)
  1. VITAMIN D2 [Concomitant]
     Active Substance: ERGOCALCIFEROL
     Dosage: 1.25 MG, UNK
     Route: 048
     Dates: start: 20160630
  2. TIZANIDINE HCL [Concomitant]
     Active Substance: TIZANIDINE HYDROCHLORIDE
     Dosage: 04 MG, UNK
     Route: 048
     Dates: start: 20160630
  3. DYMISTA [Concomitant]
     Active Substance: AZELASTINE HYDROCHLORIDE\FLUTICASONE PROPIONATE
     Dosage: (137-50 MCG) 2 PUFFS, BID
     Route: 045
     Dates: start: 20151013
  4. POTASSIUM [Concomitant]
     Active Substance: POTASSIUM
     Dosage: UNK UNK, QD
     Route: 048
     Dates: start: 20150115
  5. LANTUS [Concomitant]
     Active Substance: INSULIN GLARGINE
     Dosage: 44 (100 UNIT/ML), UNK
     Route: 058
     Dates: start: 20140227
  6. NITROSTAT [Concomitant]
     Active Substance: NITROGLYCERIN
     Dosage: 0.4 MG, AS NECESSARY
     Route: 060
     Dates: start: 20110727
  7. GAS-X [Concomitant]
     Active Substance: DIMETHICONE
     Dosage: 3 UNK, AS NECESSARY
     Route: 048
     Dates: start: 20110727
  8. DEXILANT [Concomitant]
     Active Substance: DEXLANSOPRAZOLE
     Dosage: 60 MG, QD
     Route: 048
     Dates: start: 20110727
  9. ALBUTEROL SULFATE. [Concomitant]
     Active Substance: ALBUTEROL SULFATE
     Dosage: 1 PUFF, 0.083 % INHALATION NEBULIZATION SOLUTION, (2.5MG/3ML), QID
     Dates: start: 20121025
  10. JANUVIA [Concomitant]
     Active Substance: SITAGLIPTIN PHOSPHATE
     Dosage: 100 MG, QD
     Route: 048
     Dates: start: 20121025
  11. TOPIRAMATE. [Concomitant]
     Active Substance: TOPIRAMATE
     Dosage: 50 MG, BID
     Route: 048
     Dates: start: 20160610
  12. OSCIMIN [Concomitant]
     Active Substance: HYOSCYAMINE SULFATE
     Dosage: 0.125 MG, TID
     Route: 048
     Dates: start: 20160630
  13. ALLEGRA ALLERGY [Concomitant]
     Active Substance: FEXOFENADINE HYDROCHLORIDE
     Dosage: 180 MG, QD
     Route: 048
     Dates: start: 20121025
  14. TRAMADOL HCL [Concomitant]
     Active Substance: TRAMADOL HYDROCHLORIDE
     Dosage: 50 MG, UNK
     Route: 048
     Dates: start: 20160630
  15. PROAIR HFA [Concomitant]
     Active Substance: ALBUTEROL SULFATE
     Indication: DYSPNOEA
     Dosage: 108 MUG, AS NECESSARY
     Dates: start: 20160613
  16. ASPIRIN EC [Concomitant]
     Active Substance: ASPIRIN
     Dosage: UNK UNK, AS NECESSARY
     Dates: start: 20110727
  17. REPATHA [Suspect]
     Active Substance: EVOLOCUMAB
     Indication: PRODUCT USED FOR UNKNOWN INDICATION
     Dosage: 420 MG, QMO
     Route: 058
     Dates: start: 20160610
  18. HYDROMET [Concomitant]
     Active Substance: HOMATROPINE METHYLBROMIDE\HYDROCODONE BITARTRATE
     Indication: COUGH
     Dosage: (1.5-5 MG/5 ML), AS NECESSARY
     Route: 048
     Dates: start: 20121025
  19. BREO ELLIPTA [Concomitant]
     Active Substance: FLUTICASONE FUROATE\VILANTEROL TRIFENATATE
     Dosage: (200-25 MCG) 1 PUFF, QD
     Dates: start: 20130613
  20. EDARBI [Concomitant]
     Active Substance: AZILSARTAN KAMEDOXOMIL
     Dosage: 40 MG, QD
     Route: 048
     Dates: start: 20130613
  21. HUMALOG [Concomitant]
     Active Substance: INSULIN LISPRO
     Dosage: 100 (UNITS/ML), UNK
     Route: 058
     Dates: start: 20140306

REACTIONS (3)
  - Injection site erythema [Recovered/Resolved]
  - Injection site swelling [Recovered/Resolved]
  - Injection site pain [Recovered/Resolved]

NARRATIVE: CASE EVENT DATE: 20180327
